FAERS Safety Report 9233190 (Version 1)
Quarter: 2013Q2

REPORT INFORMATION
  Report Type: Report from Study
  Country: VE (occurrence: VE)
  Receive Date: 20130416
  Receipt Date: 20130416
  Transmission Date: 20140414
  Serious: Yes (Other)
  Sender: FDA-Public Use
  Company Number: VE-ABBOTT-13P-178-1075520-00

PATIENT
  Sex: Female
  Weight: 80 kg

DRUGS (2)
  1. HUMIRA [Suspect]
     Indication: RHEUMATOID ARTHRITIS
     Dosage: 1 PREFILLED SYRINGE
     Route: 058
     Dates: start: 20081101, end: 2011
  2. METHOTREXATO [Concomitant]
     Indication: RHEUMATOID ARTHRITIS

REACTIONS (1)
  - Tuberculin test positive [Not Recovered/Not Resolved]
